FAERS Safety Report 16027901 (Version 1)
Quarter: 2019Q1

REPORT INFORMATION
  Report Type: Spontaneous
  Country: US (occurrence: US)
  Receive Date: 20190304
  Receipt Date: 20190304
  Transmission Date: 20190418
  Serious: No
  Sender: FDA-Public Use
  Company Number: US-IMPAX LABORATORIES, LLC-2018-IPXL-01071

PATIENT
  Age: 60 Year
  Sex: Male
  Weight: 95 kg

DRUGS (5)
  1. DONEPEZIL. [Concomitant]
     Active Substance: DONEPEZIL
     Indication: DEMENTIA
     Dosage: UNK
     Route: 048
  2. RYTARY [Suspect]
     Active Substance: CARBIDOPA\LEVODOPA
     Indication: PARKINSON^S DISEASE
     Dosage: 61.25/245MG, ONE CAPSULES, FOUR TIMES DAILY
     Route: 048
     Dates: start: 2016
  3. RYTARY [Suspect]
     Active Substance: CARBIDOPA\LEVODOPA
     Indication: DEMENTIA WITH LEWY BODIES
     Dosage: 61.25/245MG, TWO CAPSULES, FOUR TIMES DAILY AND ONE CAPSULE AROUND 3 AM
     Route: 048
  4. RYTARY [Suspect]
     Active Substance: CARBIDOPA\LEVODOPA
     Dosage: 61.25/245MG, TWO CAPSULES, FOUR TIMES DAILY AND TWO CAPSULE AROUND 3 AM
     Route: 048
  5. RASAGILINE. [Concomitant]
     Active Substance: RASAGILINE
     Indication: PARKINSON^S DISEASE
     Dosage: UNK
     Route: 048

REACTIONS (1)
  - Drug effect delayed [Recovered/Resolved]
